FAERS Safety Report 12964863 (Version 1)
Quarter: 2016Q4

REPORT INFORMATION
  Report Type: Spontaneous
  Country: US (occurrence: US)
  Receive Date: 20161122
  Receipt Date: 20161122
  Transmission Date: 20170207
  Serious: Yes (Hospitalization)
  Sender: FDA-Public Use
  Company Number: US-IMPAX LABORATORIES, INC-2016-IPXL-02094

PATIENT
  Age: 57 Year
  Sex: Male

DRUGS (1)
  1. MINOCYCLINE HYDROCHLORIDE. [Suspect]
     Active Substance: MINOCYCLINE HYDROCHLORIDE
     Indication: ROSACEA
     Dosage: UNK; CHRONIC DOSES
     Route: 048

REACTIONS (6)
  - Subdural haematoma [Unknown]
  - Pigmentation disorder [Unknown]
  - Toxicity to various agents [Unknown]
  - Fall [Unknown]
  - Bone hyperpigmentation [Unknown]
  - Normal pressure hydrocephalus [Recovered/Resolved]
